FAERS Safety Report 9717637 (Version 2)
Quarter: 2013Q4

REPORT INFORMATION
  Report Type: Report from Study
  Country: KR (occurrence: KR)
  Receive Date: 20131127
  Receipt Date: 20131204
  Transmission Date: 20140711
  Serious: Yes (Hospitalization)
  Sender: FDA-Public Use
  Company Number: KR-JNJFOC-20131111126

PATIENT
  Age: 15 Year
  Sex: Male
  Weight: 40.3 kg

DRUGS (10)
  1. REMICADE [Suspect]
     Indication: CROHN^S DISEASE
     Route: 042
     Dates: start: 20121023, end: 20130418
  2. SALOFALK [Concomitant]
     Indication: CROHN^S DISEASE
     Route: 048
     Dates: start: 20121008, end: 20121016
  3. NISOLONE [Concomitant]
     Indication: CROHN^S DISEASE
     Route: 048
     Dates: start: 20121005, end: 20121008
  4. FERUMAT [Concomitant]
     Dosage: 100MG/5 MG WITH DOSE OF 0.5 BTL
     Route: 048
     Dates: start: 20121210, end: 20130109
  5. FEROBA YOU SR [Concomitant]
     Dosage: 100MG/5 MG WITH DOSE OF 0.5 BTL
     Route: 048
     Dates: start: 20130110
  6. TAZOPERAN [Concomitant]
     Dosage: 0.75 VIAL
     Route: 042
     Dates: start: 20121016, end: 20121017
  7. CITOPCIN [Concomitant]
     Dosage: 400 MG / 200 ML
     Route: 042
     Dates: start: 20121017, end: 20121025
  8. CEFOTAXIME [Concomitant]
     Dosage: 2 G/VIAL
     Route: 042
     Dates: start: 20111115, end: 20111127
  9. METRONIDAZOLE [Concomitant]
     Dosage: 500 MG/100 ML
     Route: 042
     Dates: start: 20111115, end: 20111127
  10. BIOFLOR [Concomitant]
     Indication: GASTRIC DISORDER
     Dosage: 282.5 MG, 250 STRENGTH, 1 CAP
     Route: 048
     Dates: start: 20120915, end: 20121119

REACTIONS (1)
  - Abdominal pain [Recovered/Resolved]
